FAERS Safety Report 8547074-4 (Version None)
Quarter: 2012Q3

REPORT INFORMATION
  Report Type: 
  Country: None (occurrence: None)
  Receive Date: 20120727
  Receipt Date: 20120213
  Transmission Date: 20120928
  Serious: No
  Sender: FDA-Public Use
  Company Number: US-ASTRAZENECA-2012SE09900

PATIENT
  Age: 49 Year
  Sex: Male
  Weight: 79.4 kg

DRUGS (7)
  1. SEROQUEL [Suspect]
     Route: 048
     Dates: start: 20120101
  2. RISPERIDONE [Concomitant]
  3. SEROQUEL [Suspect]
     Route: 048
  4. SEROQUEL [Suspect]
     Route: 048
  5. SEROQUEL [Suspect]
     Route: 048
     Dates: start: 20110601
  6. SEROQUEL [Suspect]
     Indication: BIPOLAR I DISORDER
     Route: 048
  7. SEROQUEL [Suspect]
     Route: 048
     Dates: start: 20110801

REACTIONS (4)
  - THERAPEUTIC RESPONSE UNEXPECTED [None]
  - DEPRESSION [None]
  - DRUG EFFECT DECREASED [None]
  - ANXIETY [None]
